FAERS Safety Report 25483176 (Version 1)
Quarter: 2025Q2

REPORT INFORMATION
  Report Type: Spontaneous
  Country: US (occurrence: None)
  Receive Date: 20250625
  Receipt Date: 20250625
  Transmission Date: 20250716
  Serious: Yes (Hospitalization)
  Sender: FDA-CTU
  Company Number: None

PATIENT
  Age: 73 Year
  Sex: Female
  Weight: 54.43 kg

DRUGS (2)
  1. UNSPECIFIED INGREDIENT [Suspect]
     Active Substance: UNSPECIFIED INGREDIENT
  2. Armour thyroid 90/day. [Concomitant]

REACTIONS (3)
  - Malaise [None]
  - Suicide attempt [None]
  - Feeling of despair [None]

NARRATIVE: CASE EVENT DATE: 20241006
